FAERS Safety Report 21838164 (Version 2)
Quarter: 2023Q1

REPORT INFORMATION
  Report Type: Report from Study
  Country: US (occurrence: US)
  Receive Date: 20230109
  Receipt Date: 20230201
  Transmission Date: 20230417
  Serious: No
  Sender: FDA-Public Use
  Company Number: US-ABBVIE-4261460

PATIENT
  Age: 70 Year
  Sex: Male
  Weight: 97.522 kg

DRUGS (6)
  1. CREON [Suspect]
     Active Substance: PANCRELIPASE AMYLASE\PANCRELIPASE LIPASE\PANCRELIPASE PROTEASE
     Indication: Pancreatic disorder
     Dosage: TIME INTERVAL: 0.33333333 DAYS
     Route: 048
     Dates: start: 2021
  2. HUMULIN N [Concomitant]
     Active Substance: INSULIN HUMAN
     Indication: Blood insulin
  3. HUMALOG [Concomitant]
     Active Substance: INSULIN LISPRO
     Indication: Blood insulin
  4. ELIQUIS [Concomitant]
     Active Substance: APIXABAN
     Indication: Anticoagulant therapy
  5. OMEPRAZOLE [Concomitant]
     Active Substance: OMEPRAZOLE
     Indication: Gastrooesophageal reflux disease
  6. LISINOPRIL [Concomitant]
     Active Substance: LISINOPRIL
     Indication: Blood pressure measurement

REACTIONS (5)
  - Abdominal pain [Recovered/Resolved]
  - Diabetes mellitus [Unknown]
  - Abdominal pain upper [Recovered/Resolved]
  - Vomiting [Unknown]
  - Digestive enzyme abnormal [Unknown]

NARRATIVE: CASE EVENT DATE: 20221201
